FAERS Safety Report 25627625 (Version 1)
Quarter: 2025Q3

REPORT INFORMATION
  Report Type: Spontaneous
  Country: CN (occurrence: CN)
  Receive Date: 20250731
  Receipt Date: 20250731
  Transmission Date: 20251020
  Serious: Yes (Life-Threatening)
  Sender: BAYER HEALTHCARE PHARMACEUTICALS INC.
  Company Number: CN-BAYER-2025A102016

PATIENT
  Age: 60 Year
  Sex: Male

DRUGS (1)
  1. ULTRAVIST [Suspect]
     Active Substance: IOPROMIDE
     Indication: Computerised tomogram
     Route: 042
     Dates: start: 20250708, end: 20250708

REACTIONS (6)
  - Contrast media allergy [Recovering/Resolving]
  - Respiration abnormal [None]
  - Loss of consciousness [Recovered/Resolved]
  - Hypertension [None]
  - Oxygen saturation decreased [None]
  - Cyanosis [None]

NARRATIVE: CASE EVENT DATE: 20250708
